FAERS Safety Report 9838112 (Version 1)
Quarter: 2014Q1

REPORT INFORMATION
  Report Type: Report from Study
  Country: US (occurrence: US)
  Receive Date: 20140123
  Receipt Date: 20140123
  Transmission Date: 20141002
  Serious: Yes (Death)
  Sender: FDA-Public Use
  Company Number: US-PFIZER INC-2014018236

PATIENT
  Age: 48 Year
  Sex: Female

DRUGS (3)
  1. TRAMADOL HCL [Suspect]
     Dosage: UNK
  2. GABAPENTIN [Suspect]
     Dosage: UNK
  3. ZOLPIDEM TARTRATE [Suspect]
     Dosage: UNK

REACTIONS (1)
  - Toxicity to various agents [Fatal]
